FAERS Safety Report 24467152 (Version 1)
Quarter: 2024Q4

REPORT INFORMATION
  Report Type: Report from Study
  Country: US (occurrence: US)
  Receive Date: 20241018
  Receipt Date: 20241018
  Transmission Date: 20250115
  Serious: No
  Sender: ROCHE
  Company Number: US-ROCHE-3567011

PATIENT
  Age: 54 Year
  Sex: Female

DRUGS (8)
  1. XOLAIR [Suspect]
     Active Substance: OMALIZUMAB
     Indication: Idiopathic urticaria
     Dosage: LAST INJECTION DATE: 15/MAY/2024
     Route: 058
  2. ALLEGRA [Concomitant]
     Active Substance: FEXOFENADINE HYDROCHLORIDE
  3. FAMOTIDINE [Concomitant]
     Active Substance: FAMOTIDINE
  4. DIAZEPAM [Concomitant]
     Active Substance: DIAZEPAM
  5. EPIPEN [Concomitant]
     Active Substance: EPINEPHRINE
  6. SPIRONOLACTONE [Concomitant]
     Active Substance: SPIRONOLACTONE
  7. TRIAMTERENE [Concomitant]
     Active Substance: TRIAMTERENE
  8. XIIDRA [Concomitant]
     Active Substance: LIFITEGRAST

REACTIONS (2)
  - Off label use [Unknown]
  - No adverse event [Unknown]
